FAERS Safety Report 6389360-2 (Version None)
Quarter: 2009Q4

REPORT INFORMATION
  Report Type: 
  Country: None (occurrence: None)
  Receive Date: 20091005
  Receipt Date: 20091005
  Transmission Date: 20100525
  Serious: No
  Sender: FDA-Public Use
  Company Number: None

PATIENT
  Age: 40 Year
  Sex: Female
  Weight: 93.8946 kg

DRUGS (1)
  1. IMITREX [Suspect]
     Indication: MIGRAINE
     Dosage: 100MG ON ONSET OF HEADACHE PO
     Route: 048
     Dates: start: 20090718

REACTIONS (2)
  - DRUG INEFFECTIVE [None]
  - HEADACHE [None]
